FAERS Safety Report 15554107 (Version 3)
Quarter: 2019Q1

REPORT INFORMATION
  Report Type: Spontaneous
  Country: NL (occurrence: NL)
  Receive Date: 20181026
  Receipt Date: 20190330
  Transmission Date: 20190417
  Serious: Yes (Other)
  Sender: FDA-Public Use
  Company Number: NL-ACCORD-072782

PATIENT
  Age: 66 Year
  Sex: Female

DRUGS (3)
  1. BENSERAZIDE/LEVODOPA [Concomitant]
     Indication: PARKINSON^S DISEASE
     Dosage: AS NECESSARY, DAILY
  2. CARBIDOPA/LEVODOPA [Suspect]
     Active Substance: CARBIDOPA\LEVODOPA
     Indication: PARKINSON^S DISEASE
     Dosage: AS NECESSARY, DAILY
     Route: 048
  3. ROPINIROLE/ROPINIROLE HYDROCHLORIDE [Concomitant]
     Indication: PARKINSON^S DISEASE

REACTIONS (2)
  - Polyneuropathy [None]
  - Vitamin B6 deficiency [Recovering/Resolving]
